FAERS Safety Report 23179826 (Version 1)
Quarter: 2023Q4

REPORT INFORMATION
  Report Type: Spontaneous
  Country: IT (occurrence: IT)
  Receive Date: 20231114
  Receipt Date: 20231114
  Transmission Date: 20240110
  Serious: Yes (Death, Life-Threatening, Hospitalization, Other)
  Sender: FDA-Public Use
  Company Number: IT-CELGENE-ITA-20210601608

PATIENT
  Age: 70 Year
  Sex: Male

DRUGS (35)
  1. AZACITIDINE [Suspect]
     Active Substance: AZACITIDINE
     Indication: Acute myeloid leukaemia
     Route: 042
     Dates: start: 20210208, end: 20210511
  2. AZACITIDINE [Suspect]
     Active Substance: AZACITIDINE
     Route: 058
  3. PEVONEDISTAT [Suspect]
     Active Substance: PEVONEDISTAT
     Indication: Acute myeloid leukaemia
     Dosage: FREQUENCY TEXT: NOT PROVIDED
     Dates: start: 20210208, end: 20210511
  4. VENETOCLAX [Suspect]
     Active Substance: VENETOCLAX
     Indication: Acute myeloid leukaemia
     Dosage: FREQUENCY TEXT: NOT PROVIDED
     Route: 048
     Dates: start: 20210208, end: 20210511
  5. VENETOCLAX [Suspect]
     Active Substance: VENETOCLAX
     Dosage: FREQUENCY TEXT: NOT PROVIDED
     Route: 048
     Dates: start: 20210209
  6. VENETOCLAX [Suspect]
     Active Substance: VENETOCLAX
     Dosage: FREQUENCY TEXT: NOT PROVIDED
     Route: 048
     Dates: start: 20210210
  7. VENETOCLAX [Suspect]
     Active Substance: VENETOCLAX
     Dosage: FREQUENCY TEXT: NOT PROVIDED
     Route: 048
     Dates: start: 20210211
  8. ROSUVASTATIN [Concomitant]
     Active Substance: ROSUVASTATIN
     Indication: Prophylaxis
     Dosage: FREQUENCY TEXT: NOT PROVIDED
     Dates: start: 2014
  9. MAGNESIUM PIDOLATE [Concomitant]
     Active Substance: MAGNESIUM PIDOLATE
     Indication: Hypomagnesaemia
     Dosage: FREQUENCY TEXT: NOT PROVIDED
     Dates: start: 20210208
  10. DISINTYL [Concomitant]
     Indication: Post procedural complication
     Dosage: FREQUENCY TEXT: NOT PROVIDED
     Dates: start: 20210210, end: 20210302
  11. ALLOPURINOL [Concomitant]
     Active Substance: ALLOPURINOL
     Indication: Prophylaxis
     Dosage: FREQUENCY TEXT: NOT PROVIDED
     Dates: start: 20210208, end: 20210303
  12. OMEPRAZOLE [Concomitant]
     Active Substance: OMEPRAZOLE
     Indication: Abdominal pain upper
     Dosage: FREQUENCY TEXT: NOT PROVIDED
     Dates: start: 20210308, end: 20210328
  13. POSACONAZOLE [Concomitant]
     Active Substance: POSACONAZOLE
     Indication: Infection prophylaxis
     Dosage: FREQUENCY TEXT: NOT PROVIDED
     Dates: start: 20210308
  14. DEXAMETHASONE [Concomitant]
     Active Substance: DEXAMETHASONE
     Indication: Nausea
     Dosage: FREQUENCY TEXT: NOT PROVIDED
     Dates: start: 20210307
  15. TAMSULOSIN HYDROCHLORIDE [Concomitant]
     Active Substance: TAMSULOSIN HYDROCHLORIDE
     Indication: Benign prostatic hyperplasia
     Dosage: FREQUENCY TEXT: NOT PROVIDED
     Dates: start: 20210308
  16. LEVOSULPIRIDE [Concomitant]
     Active Substance: LEVOSULPIRIDE
     Indication: Nausea
     Dosage: FREQUENCY TEXT: NOT PROVIDED
     Dates: start: 20210526
  17. LEVOSULPIRIDE [Concomitant]
     Active Substance: LEVOSULPIRIDE
     Indication: Disorientation
  18. METOPROLOL TARTRATE [Concomitant]
     Active Substance: METOPROLOL TARTRATE
     Indication: Atrial fibrillation
     Dosage: FREQUENCY TEXT: NOT PROVIDED
     Dates: start: 20210315
  19. GRANISETRON HYDROCHLORIDE [Concomitant]
     Active Substance: GRANISETRON HYDROCHLORIDE
     Indication: Vomiting
     Dosage: FREQUENCY TEXT: NOT PROVIDED
     Dates: start: 20210503, end: 20210503
  20. PIPERACILLIN SODIUM [Concomitant]
     Active Substance: PIPERACILLIN SODIUM
     Indication: Septic shock
     Dosage: FREQUENCY TEXT: NOT PROVIDED
     Dates: start: 20210504, end: 20210512
  21. TAZOBACTAM [Concomitant]
     Active Substance: TAZOBACTAM
     Indication: Febrile neutropenia
     Dosage: FREQUENCY TEXT: NOT PROVIDED
     Dates: start: 20210504, end: 20210512
  22. TAZOBACTAM [Concomitant]
     Active Substance: TAZOBACTAM
     Indication: Septic shock
  23. SODIUM CHLORIDE [Concomitant]
     Active Substance: SODIUM CHLORIDE
     Indication: Febrile neutropenia
     Dosage: FREQUENCY TEXT: NOT PROVIDED
     Dates: start: 20210504, end: 20210506
  24. POTASSIUM CHLORIDE [Concomitant]
     Active Substance: POTASSIUM CHLORIDE
     Indication: Pulmonary congestion
     Dosage: FREQUENCY TEXT: NOT PROVIDED
     Dates: start: 20210311, end: 20210528
  25. BROMAZEPAM [Concomitant]
     Active Substance: BROMAZEPAM
     Indication: Product used for unknown indication
     Dosage: FREQUENCY TEXT: NOT PROVIDED
     Dates: start: 20210507, end: 20210507
  26. PROMAZINE [Concomitant]
     Active Substance: PROMAZINE
     Indication: Disorientation
     Dosage: FREQUENCY TEXT: NOT PROVIDED
     Dates: start: 20210508, end: 20210606
  27. MIDAZOLAM [Concomitant]
     Active Substance: MIDAZOLAM
     Indication: Disorientation
     Dosage: FREQUENCY TEXT: NOT PROVIDED
     Dates: start: 20210512, end: 20210512
  28. SPIRONOLACTONE [Concomitant]
     Active Substance: SPIRONOLACTONE
     Indication: Prophylaxis
     Dosage: FREQUENCY TEXT: NOT PROVIDED
     Dates: start: 20210513
  29. SPIRONOLACTONE [Concomitant]
     Active Substance: SPIRONOLACTONE
     Indication: Diuretic therapy
  30. LEVOFLOXACIN [Concomitant]
     Active Substance: LEVOFLOXACIN
     Indication: Infection prophylaxis
     Dosage: FREQUENCY TEXT: NOT PROVIDED
     Dates: start: 20210308
  31. TRAMADOL HYDROCHLORIDE [Concomitant]
     Active Substance: TRAMADOL HYDROCHLORIDE
     Indication: Pain in extremity
     Dosage: FREQUENCY TEXT: NOT PROVIDED
     Dates: start: 20210513, end: 20210526
  32. DIETARY SUPPLEMENT [Concomitant]
     Active Substance: DIETARY SUPPLEMENT
     Indication: Supplementation therapy
     Dosage: FREQUENCY TEXT: NOT PROVIDED
     Dates: start: 20210503
  33. TALOFEN [Concomitant]
     Active Substance: PROMAZINE HYDROCHLORIDE
     Indication: Psychomotor hyperactivity
     Dosage: FREQUENCY TEXT: NOT PROVIDED
     Dates: start: 20210513, end: 20210528
  34. PREDNISONE [Concomitant]
     Active Substance: PREDNISONE
     Indication: Pain in extremity
     Dosage: FREQUENCY TEXT: NOT PROVIDED
     Dates: start: 20210516
  35. ACETAMINOPHEN [Concomitant]
     Active Substance: ACETAMINOPHEN
     Indication: Pain in extremity
     Dosage: FREQUENCY TEXT: NOT PROVIDED
     Route: 017
     Dates: start: 20210526

REACTIONS (2)
  - Septic shock [Recovered/Resolved]
  - General physical health deterioration [Fatal]

NARRATIVE: CASE EVENT DATE: 20210528
